FAERS Safety Report 7117726-1 (Version None)
Quarter: 2010Q4

REPORT INFORMATION
  Report Type: 
  Country: None (occurrence: None)
  Receive Date: 20101123
  Receipt Date: 20101111
  Transmission Date: 20110411
  Serious: Yes (Hospitalization)
  Sender: FDA-Public Use
  Company Number: US-BIOGENIDEC-2010BI034081

PATIENT
  Age: 40 Year
  Sex: Female
  Weight: 83 kg

DRUGS (2)
  1. TYSABRI [Suspect]
     Indication: MULTIPLE SCLEROSIS
     Route: 042
     Dates: start: 20080206, end: 20100101
  2. TYSABRI [Suspect]
     Route: 042
     Dates: start: 20100902

REACTIONS (2)
  - ASTHENIA [None]
  - MULTIPLE SCLEROSIS RELAPSE [None]
